FAERS Safety Report 18613781 (Version 1)
Quarter: 2020Q4

REPORT INFORMATION
  Report Type: Spontaneous
  Country: US (occurrence: US)
  Receive Date: 20201214
  Receipt Date: 20201214
  Transmission Date: 20210114
  Serious: Yes (Life-Threatening, Hospitalization)
  Sender: FDA-Public Use
  Company Number: US-ABBVIE-20K-163-3240662-00

PATIENT
  Sex: Male
  Weight: 77 kg

DRUGS (3)
  1. IMBRUVICA [Suspect]
     Active Substance: IBRUTINIB
     Indication: PRODUCT USED FOR UNKNOWN INDICATION
     Route: 048
  2. IMBRUVICA [Suspect]
     Active Substance: IBRUTINIB
     Route: 048
     Dates: end: 20191025
  3. IMBRUVICA [Suspect]
     Active Substance: IBRUTINIB
     Indication: LYMPHOMA
     Route: 048

REACTIONS (9)
  - Hallucination [Unknown]
  - Rash [Unknown]
  - Urinary tract infection [Unknown]
  - Decreased appetite [Unknown]
  - Atypical pneumonia [Unknown]
  - Abnormal behaviour [Unknown]
  - Immune system disorder [Unknown]
  - Pyrexia [Unknown]
  - Vomiting [Unknown]
